FAERS Safety Report 9800999 (Version 2)
Quarter: 2014Q1

REPORT INFORMATION
  Report Type: Spontaneous
  Country: US (occurrence: US)
  Receive Date: 20140107
  Receipt Date: 20140219
  Transmission Date: 20141002
  Serious: No
  Sender: FDA-Public Use
  Company Number: US-009507513-1401USA000644

PATIENT
  Age: 37 Year
  Sex: Female
  Weight: 74.38 kg

DRUGS (1)
  1. PROVENTIL [Suspect]
     Indication: BRONCHOSPASM
     Dosage: 2 DF, EVERY 4 TO 6 HOURS
     Route: 055
     Dates: start: 201210

REACTIONS (3)
  - Dyspnoea [Recovering/Resolving]
  - Product quality issue [Unknown]
  - Drug dose omission [Unknown]
